FAERS Safety Report 10076645 (Version 2)
Quarter: 2014Q2

REPORT INFORMATION
  Report Type: Spontaneous
  Country: US (occurrence: US)
  Receive Date: 20140414
  Receipt Date: 20140507
  Transmission Date: 20141212
  Serious: No
  Sender: FDA-Public Use
  Company Number: US-PFIZER INC-2014102616

PATIENT
  Age: 41 Year
  Sex: Male

DRUGS (1)
  1. LYRICA [Suspect]
     Dosage: 75 MG, BID
     Route: 048
     Dates: start: 20140402, end: 20140407

REACTIONS (2)
  - Oedema [Recovered/Resolved]
  - Oedema peripheral [Recovering/Resolving]
